FAERS Safety Report 18591983 (Version 1)
Quarter: 2020Q4

REPORT INFORMATION
  Report Type: Spontaneous
  Country: US (occurrence: US)
  Receive Date: 20201208
  Receipt Date: 20201208
  Transmission Date: 20210114
  Serious: No
  Sender: FDA-Public Use
  Company Number: US-BAUSCH-BL-2020-034268

PATIENT
  Sex: Female

DRUGS (1)
  1. BRIMONIDINE TARTRATE OPHTHALMIC SOLUTION 0.2% [Suspect]
     Active Substance: BRIMONIDINE TARTRATE
     Indication: PRODUCT USED FOR UNKNOWN INDICATION
     Dosage: 15 ML BOTTLE
     Route: 047

REACTIONS (4)
  - Eye irritation [Unknown]
  - Wrong technique in product usage process [Unknown]
  - Product closure removal difficult [Unknown]
  - Ocular hyperaemia [Unknown]
